FAERS Safety Report 9134411 (Version 1)
Quarter: 2013Q1

REPORT INFORMATION
  Report Type: Spontaneous
  Country: US (occurrence: US)
  Receive Date: 20130304
  Receipt Date: 20130304
  Transmission Date: 20140127
  Serious: Yes (Hospitalization, Other)
  Sender: FDA-Public Use
  Company Number: US-ENDO PHARMACEUTICALS INC.-VALS20100049

PATIENT
  Age: 78 Year
  Sex: Male
  Weight: 99.43 kg

DRUGS (1)
  1. VALSTAR [Suspect]
     Indication: BLADDER CANCER
     Route: 043

REACTIONS (2)
  - Disease progression [Unknown]
  - Urinary incontinence [Recovered/Resolved]
